FAERS Safety Report 20704797 (Version 2)
Quarter: 2022Q2

REPORT INFORMATION
  Report Type: Spontaneous
  Country: NO (occurrence: NO)
  Receive Date: 20220413
  Receipt Date: 20220426
  Transmission Date: 20220720
  Serious: Yes (Life-Threatening, Hospitalization)
  Sender: FDA-Public Use
  Company Number: NO-TEVA-2022-NO-2025872

PATIENT
  Age: 71 Year
  Sex: Male

DRUGS (7)
  1. MYCOPHENOLATE MOFETIL [Suspect]
     Active Substance: MYCOPHENOLATE MOFETIL
     Indication: Immunoglobulin G4 related disease
     Dosage: 2 GRAM DAILY;
     Route: 048
     Dates: start: 2019
  2. PREDNISONE [Suspect]
     Active Substance: PREDNISONE
     Indication: Immunoglobulin G4 related disease
     Dosage: 50 MILLIGRAM DAILY;
     Route: 048
     Dates: start: 2018
  3. PREDNISONE [Suspect]
     Active Substance: PREDNISONE
     Indication: Immunoglobulin G4 related disease
     Dosage: 45 MILLIGRAM DAILY;
     Route: 048
     Dates: start: 2018
  4. PREDNISONE [Suspect]
     Active Substance: PREDNISONE
     Indication: Immunoglobulin G4 related disease
     Dosage: 30 MILLIGRAM DAILY;
     Route: 048
     Dates: start: 2019
  5. PREDNISONE [Suspect]
     Active Substance: PREDNISONE
     Indication: Immunoglobulin G4 related disease
     Dosage: 20 MILLIGRAM DAILY;
     Route: 048
     Dates: start: 2019
  6. PREDNISONE [Suspect]
     Active Substance: PREDNISONE
     Indication: Immunoglobulin G4 related disease
     Dosage: 50 MILLIGRAM DAILY;
     Route: 048
     Dates: start: 2020
  7. RITUXIMAB [Suspect]
     Active Substance: RITUXIMAB
     Indication: Immunoglobulin G4 related disease
     Dosage: TWO INDUCTION DOSES
     Route: 042
     Dates: start: 201908

REACTIONS (5)
  - Disseminated strongyloidiasis [Not Recovered/Not Resolved]
  - Septic shock [Not Recovered/Not Resolved]
  - Escherichia infection [Recovered/Resolved]
  - Enterococcal infection [Unknown]
  - Bacteraemia [Unknown]

NARRATIVE: CASE EVENT DATE: 20200101
